FAERS Safety Report 23897941 (Version 2)
Quarter: 2024Q2

REPORT INFORMATION
  Report Type: Spontaneous
  Country: NZ (occurrence: None)
  Receive Date: 20240524
  Receipt Date: 20240611
  Transmission Date: 20240715
  Serious: Yes (Other)
  Sender: FDA-Public Use
  Company Number: 2024A117713

PATIENT
  Age: 17025 Day
  Sex: Female

DRUGS (14)
  1. GOSERELIN [Suspect]
     Active Substance: GOSERELIN
     Route: 058
  2. GOSERELIN [Suspect]
     Active Substance: GOSERELIN
     Route: 058
     Dates: start: 20230731
  3. FASLODEX [Suspect]
     Active Substance: FULVESTRANT
     Route: 030
     Dates: start: 202304
  4. FASLODEX [Suspect]
     Active Substance: FULVESTRANT
     Route: 030
     Dates: start: 20230731
  5. ABEMACICLIB [Concomitant]
     Active Substance: ABEMACICLIB
     Dates: start: 202304
  6. LEUPROLIDE ACETATE [Concomitant]
     Active Substance: ISOPROPYL ALCOHOL\LEUPROLIDE ACETATE
     Dates: start: 201907
  7. LEUPROLIDE ACETATE [Concomitant]
     Active Substance: ISOPROPYL ALCOHOL\LEUPROLIDE ACETATE
     Dates: start: 20200221, end: 202004
  8. LEUPROLIDE ACETATE [Concomitant]
     Active Substance: ISOPROPYL ALCOHOL\LEUPROLIDE ACETATE
     Dates: start: 202304
  9. ADRIAMYCIN [Concomitant]
     Active Substance: DOXORUBICIN HYDROCHLORIDE
     Dates: end: 202403
  10. ADRIAMYCIN [Concomitant]
     Active Substance: DOXORUBICIN HYDROCHLORIDE
     Dates: start: 202403, end: 20240508
  11. DEXAMETHASONE [Concomitant]
     Active Substance: DEXAMETHASONE
  12. EXEMESTANE [Concomitant]
     Active Substance: EXEMESTANE
     Dates: start: 201907
  13. EXEMESTANE [Concomitant]
     Active Substance: EXEMESTANE
     Dates: start: 20230929
  14. ZOLEDRONIC ACID [Concomitant]
     Active Substance: ZOLEDRONIC ACID
     Dates: start: 20240221

REACTIONS (1)
  - Malignant neoplasm progression [Unknown]

NARRATIVE: CASE EVENT DATE: 20240215
